FAERS Safety Report 9612250 (Version 2)
Quarter: 2015Q3

REPORT INFORMATION
  Report Type: Spontaneous
  Country: US (occurrence: US)
  Receive Date: 20131010
  Receipt Date: 20150723
  Transmission Date: 20151125
  Serious: No
  Sender: FDA-Public Use
  Company Number: US-ASTELLAS-2013US008187

PATIENT
  Age: 74 Year
  Sex: Female

DRUGS (1)
  1. MYRBETRIQ [Suspect]
     Active Substance: MIRABEGRON
     Indication: INCONTINENCE
     Route: 048
     Dates: start: 20130714

REACTIONS (7)
  - Intentional product use issue [Unknown]
  - Constipation [Unknown]
  - Dyspnoea [Unknown]
  - Vision blurred [Unknown]
  - Headache [Unknown]
  - Rheumatoid arthritis [Unknown]
  - Dry mouth [Unknown]

NARRATIVE: CASE EVENT DATE: 201307
